FAERS Safety Report 11300817 (Version 1)
Quarter: 2015Q3

REPORT INFORMATION
  Report Type: Spontaneous
  Country: US (occurrence: US)
  Receive Date: 20150722
  Receipt Date: 20150722
  Transmission Date: 20151125
  Serious: Yes (Hospitalization)
  Sender: FDA-Public Use
  Company Number: US-ELI_LILLY_AND_COMPANY-US201204010063

PATIENT
  Age: 45 Year
  Sex: Male

DRUGS (2)
  1. EFFIENT [Suspect]
     Active Substance: PRASUGREL HYDROCHLORIDE
     Indication: PERCUTANEOUS CORONARY INTERVENTION
     Dosage: UNK, UNKNOWN
     Route: 065
     Dates: start: 20120408
  2. WARFARIN [Concomitant]
     Active Substance: WARFARIN
     Dosage: UNK, UNKNOWN
     Route: 065

REACTIONS (1)
  - Gastrointestinal haemorrhage [Unknown]
